FAERS Safety Report 5993512-0 (Version None)
Quarter: 2008Q4

REPORT INFORMATION
  Report Type: 
  Country: None (occurrence: None)
  Receive Date: 20081210
  Receipt Date: 20081125
  Transmission Date: 20090506
  Serious: Yes (Hospitalization)
  Sender: FDA-Public Use
  Company Number: 2008AL012012

PATIENT
  Age: 55 Year
  Sex: Female

DRUGS (1)
  1. DICLOFENAC SODIUM [Suspect]
     Indication: POSTOPERATIVE ANALGESIA
     Dosage: 50 MG;TID;PO
     Route: 048

REACTIONS (7)
  - ABSCESS INTESTINAL [None]
  - ANASTOMOTIC LEAK [None]
  - GASTROINTESTINAL INFLAMMATION [None]
  - GASTROINTESTINAL INJURY [None]
  - INDURATION [None]
  - INTESTINAL PERFORATION [None]
  - INTESTINAL ULCER [None]
